FAERS Safety Report 7493388-9 (Version None)
Quarter: 2011Q2

REPORT INFORMATION
  Report Type: 
  Country: None (occurrence: None)
  Receive Date: 20110520
  Receipt Date: 20110506
  Transmission Date: 20111010
  Serious: Yes (Life-Threatening, Hospitalization, Disabling)
  Sender: FDA-Public Use
  Company Number: GB-MYLANLABS-2011S1009522

PATIENT
  Age: 87 Year
  Sex: Male

DRUGS (13)
  1. PYRAZINAMIDE [Concomitant]
     Indication: TUBERCULOSIS
  2. FORTISIP [Concomitant]
     Indication: NUTRITIONAL SUPPORT
  3. CITALOPRAM [Concomitant]
     Indication: DEPRESSION
     Route: 048
  4. HYDROXOCOBALAMIN [Concomitant]
     Indication: VITAMIN B12 DEFICIENCY
  5. SIMVASTATIN [Suspect]
     Indication: CARDIAC FAILURE
     Route: 048
  6. SIMVASTATIN [Suspect]
     Indication: MYOCARDIAL ISCHAEMIA
     Route: 048
  7. ISONIAZID [Concomitant]
     Indication: TUBERCULOSIS
  8. RAMIPRIL [Concomitant]
     Indication: CARDIAC FAILURE
     Route: 048
  9. SENNA-MINT WAF [Concomitant]
     Indication: CONSTIPATION
     Route: 048
  10. OMEPRAZOLE [Concomitant]
     Indication: PRODUCT USED FOR UNKNOWN INDICATION
     Route: 048
  11. BISOPROLOL FUMARATE [Concomitant]
     Indication: CARDIAC FAILURE
     Route: 048
  12. FUROSEMIDE [Concomitant]
     Indication: CARDIAC FAILURE
     Route: 048
  13. RIFAMPICIN [Concomitant]
     Indication: TUBERCULOSIS

REACTIONS (2)
  - WEIGHT DECREASED [None]
  - PULMONARY FIBROSIS [None]
